FAERS Safety Report 7067477-7 (Version None)
Quarter: 2010Q4

REPORT INFORMATION
  Report Type: 
  Country: None (occurrence: None)
  Receive Date: 20101028
  Receipt Date: 20101013
  Transmission Date: 20110411
  Serious: Yes (Death)
  Sender: FDA-Public Use
  Company Number: US-AMGEN-USASP2010000452

PATIENT

DRUGS (3)
  1. NPLATE [Suspect]
     Indication: IDIOPATHIC THROMBOCYTOPENIC PURPURA
     Dates: start: 20090109
  2. IMMU-G [Concomitant]
     Dosage: UNK
     Route: 042
     Dates: start: 20070101
  3. IMURAN [Concomitant]
     Dosage: UNK
     Dates: start: 20070201

REACTIONS (1)
  - DEATH [None]
